FAERS Safety Report 5045228-5 (Version None)
Quarter: 2006Q3

REPORT INFORMATION
  Report Type: 
  Country: None (occurrence: None)
  Receive Date: 20060707
  Receipt Date: 20060628
  Transmission Date: 20061208
  Serious: Yes (Hospitalization)
  Sender: FDA-Public Use
  Company Number: FR-GLAXOSMITHKLINE-B0429907A

PATIENT
  Age: 55 Year
  Sex: Female

DRUGS (4)
  1. DEROXAT [Suspect]
     Dosage: 20MG PER DAY
     Route: 048
     Dates: start: 20060117, end: 20060127
  2. MEPRONIZINE [Suspect]
     Dosage: 1TAB PER DAY
     Route: 048
     Dates: start: 20060113, end: 20060126
  3. EPITOMAX [Concomitant]
     Indication: BIPOLAR DISORDER
  4. PROZAC [Concomitant]
     Dates: start: 20060101

REACTIONS (4)
  - BLOOD PRESSURE DECREASED [None]
  - FALL [None]
  - MALAISE [None]
  - SINUS BRADYCARDIA [None]
